FAERS Safety Report 6355329-7 (Version None)
Quarter: 2009Q3

REPORT INFORMATION
  Report Type: 
  Country: None (occurrence: None)
  Receive Date: 20090914
  Receipt Date: 20090901
  Transmission Date: 20100115
  Serious: Yes (Other)
  Sender: FDA-Public Use
  Company Number: PHHY2009BR37015

PATIENT
  Age: 57 Year
  Sex: Female
  Weight: 74 kg

DRUGS (5)
  1. SANDIMMUNE [Suspect]
     Indication: PLATELET COUNT DECREASED
     Dosage: 1 CAPSULE DAILY
     Dates: start: 20090416
  2. SANDIMMUNE [Suspect]
     Dosage: 1 CAPSULE DAILY
  3. FOLIC ACID [Concomitant]
     Dosage: 1 TABLET DAILY
     Route: 048
  4. OMEPRAZOLE [Concomitant]
     Indication: GASTRIC DISORDER
     Dosage: 1 TABLET IN THE MORNING ON FASTING
     Route: 048
  5. GENOXAL [Concomitant]
     Dosage: 50 MG, 1 TAB/DAY

REACTIONS (2)
  - EXPIRED DRUG ADMINISTERED [None]
  - PLATELET COUNT INCREASED [None]
